FAERS Safety Report 6508359-6 (Version None)
Quarter: 2009Q4

REPORT INFORMATION
  Report Type: 
  Country: None (occurrence: None)
  Receive Date: 20091221
  Receipt Date: 20081016
  Transmission Date: 20100525
  Serious: No
  Sender: FDA-Public Use
  Company Number: US-ASTRAZENECA-2008UW22980

PATIENT
  Age: 71 Year
  Sex: Female

DRUGS (2)
  1. CRESTOR [Suspect]
     Route: 048
  2. ZOMETA [Concomitant]
     Dosage: ONCE MONTHLY INFUSION
     Dates: start: 20080701

REACTIONS (5)
  - ARTHRALGIA [None]
  - DIARRHOEA [None]
  - INSOMNIA [None]
  - MYALGIA [None]
  - NAUSEA [None]
